FAERS Safety Report 7364849-8 (Version None)
Quarter: 2011Q1

REPORT INFORMATION
  Report Type: 
  Country: None (occurrence: None)
  Receive Date: 20110321
  Receipt Date: 20110309
  Transmission Date: 20110831
  Serious: Yes (Other)
  Sender: FDA-Public Use
  Company Number: PHHY2011JP19398

PATIENT
  Age: 53 Year
  Sex: Female

DRUGS (1)
  1. NEORAL [Suspect]
     Indication: BONE MARROW TRANSPLANT
     Dosage: 40 MG, UNK
     Route: 048

REACTIONS (1)
  - CYSTITIS INTERSTITIAL [None]
